FAERS Safety Report 25775518 (Version 2)
Quarter: 2025Q4

REPORT INFORMATION
  Report Type: Report from Study
  Country: US (occurrence: US)
  Receive Date: 20250909
  Receipt Date: 20251114
  Transmission Date: 20260117
  Serious: Yes (Hospitalization, Other)
  Sender: ACADIA PHARMACEUTICALS
  Company Number: US-ACADIA PHARMACEUTICALS INC.-ACA-2025-PIM-009930

PATIENT
  Age: 77 Year
  Sex: Male

DRUGS (14)
  1. NUPLAZID [Suspect]
     Active Substance: PIMAVANSERIN TARTRATE
     Indication: Parkinson^s disease psychosis
     Dosage: 34 MILLIGRAM, QD
     Route: 048
     Dates: start: 20250707
  2. OMEPRAZOLE DELAYED RELEASE [OMEPRAZOLE] [Concomitant]
  3. LISINOPRIL [Concomitant]
     Active Substance: LISINOPRIL
  4. MEMANTINE [Concomitant]
     Active Substance: MEMANTINE
  5. CARBIDOPA\LEVODOPA [Concomitant]
     Active Substance: CARBIDOPA\LEVODOPA
  6. TAMSULOSIN [Concomitant]
     Active Substance: TAMSULOSIN
  7. AMLODIPINE [Concomitant]
     Active Substance: AMLODIPINE BESYLATE
  8. ATORVASTATIN [Concomitant]
     Active Substance: ATORVASTATIN
  9. DONEPEZIL [Concomitant]
     Active Substance: DONEPEZIL
  10. ASPIRIN [Concomitant]
     Active Substance: ASPIRIN
  11. VITAMIN D3 [Concomitant]
     Active Substance: CHOLECALCIFEROL
  12. ZINC [Concomitant]
     Active Substance: ZINC
  13. DOCUSATE [Concomitant]
     Active Substance: DOCUSATE
  14. MELATONIN [Concomitant]
     Active Substance: MELATONIN

REACTIONS (3)
  - Seizure [Recovering/Resolving]
  - Urinary tract infection [Recovering/Resolving]
  - Drug effect less than expected [Unknown]

NARRATIVE: CASE EVENT DATE: 20251023
